FAERS Safety Report 16147551 (Version 1)
Quarter: 2019Q2

REPORT INFORMATION
  Report Type: Spontaneous
  Country: US (occurrence: US)
  Receive Date: 20190402
  Receipt Date: 20190402
  Transmission Date: 20190711
  Serious: No
  Sender: FDA-Public Use
  Company Number: US-MYLANLABS-2019M1024418

PATIENT
  Age: 79 Year
  Sex: Female

DRUGS (1)
  1. TOBRAMYCIN. [Suspect]
     Active Substance: TOBRAMYCIN
     Indication: BRONCHIECTASIS
     Dosage: 300 MILLIGRAM, BID

REACTIONS (4)
  - Cough [Unknown]
  - Product dose omission [Unknown]
  - Abdominal discomfort [Unknown]
  - Wheezing [Unknown]
